FAERS Safety Report 17564428 (Version 1)
Quarter: 2020Q1

REPORT INFORMATION
  Report Type: Spontaneous
  Country: US (occurrence: US)
  Receive Date: 20200313
  Receipt Date: 20200313
  Transmission Date: 20200409
  Serious: Yes (Other)
  Sender: FDA-Public Use
  Company Number: None

PATIENT
  Age: 55 Year
  Sex: Female
  Weight: 81.65 kg

DRUGS (1)
  1. LISINOPRIL. [Suspect]
     Active Substance: LISINOPRIL
     Indication: HYPERTENSION
     Dosage: ?          QUANTITY:1 PILL;?
     Route: 048
     Dates: start: 202001, end: 20200304

REACTIONS (7)
  - Vomiting [None]
  - Dyspnoea exertional [None]
  - Throat tightness [None]
  - Sluggishness [None]
  - Nausea [None]
  - Asthenia [None]
  - Fatigue [None]
